FAERS Safety Report 5451571-8 (Version None)
Quarter: 2007Q3

REPORT INFORMATION
  Report Type: 
  Country: None (occurrence: None)
  Receive Date: 20070913
  Receipt Date: 20070904
  Transmission Date: 20080115
  Serious: Yes (Hospitalization)
  Sender: FDA-Public Use
  Company Number: US-SHR-US-2007-030981

PATIENT
  Age: 52 Year
  Sex: Female

DRUGS (4)
  1. BETASERON [Suspect]
     Route: 058
     Dates: start: 20050318, end: 20060128
  2. BETASERON [Suspect]
     Dosage: 8 MIU, EVERY 2D
     Route: 058
     Dates: start: 20060227
  3. TOPAMAX [Concomitant]
  4. OPANA ER [Concomitant]

REACTIONS (6)
  - DIARRHOEA [None]
  - EXPIRED DRUG ADMINISTERED [None]
  - HEADACHE [None]
  - MULTIPLE SCLEROSIS [None]
  - NAUSEA [None]
  - VOMITING [None]
